FAERS Safety Report 13795580 (Version 3)
Quarter: 2017Q4

REPORT INFORMATION
  Report Type: Spontaneous
  Country: US (occurrence: US)
  Receive Date: 20170726
  Receipt Date: 20171026
  Transmission Date: 20180320
  Serious: No
  Sender: FDA-Public Use
  Company Number: US-NEUROCRINE BIOSCIENCES INC.-2017NBI00415

PATIENT
  Age: 64 Year
  Sex: Female
  Weight: 113.5 kg

DRUGS (15)
  1. INGREZZA [Suspect]
     Active Substance: VALBENAZINE
     Indication: TARDIVE DYSKINESIA
     Route: 048
     Dates: start: 20170612, end: 20170618
  2. BENZTROPINE [Concomitant]
     Active Substance: BENZTROPINE
     Route: 048
  3. DUONEB [Concomitant]
     Active Substance: ALBUTEROL SULFATE\IPRATROPIUM BROMIDE
  4. LOSARTAN. [Concomitant]
     Active Substance: LOSARTAN
  5. LITHIUM. [Concomitant]
     Active Substance: LITHIUM
  6. INGREZZA [Suspect]
     Active Substance: VALBENAZINE
     Route: 048
     Dates: start: 20170619, end: 20170802
  7. BENZTROPINE [Concomitant]
     Active Substance: BENZTROPINE
     Route: 048
     Dates: start: 20170718
  8. BREO ELLIPTA [Concomitant]
     Active Substance: FLUTICASONE FUROATE\VILANTEROL TRIFENATATE
  9. ZOLOFT [Concomitant]
     Active Substance: SERTRALINE HYDROCHLORIDE
  10. INVEGA [Concomitant]
     Active Substance: PALIPERIDONE
  11. LEVOTHYROXINE. [Concomitant]
     Active Substance: LEVOTHYROXINE
  12. CARVEDILOL. [Concomitant]
     Active Substance: CARVEDILOL
  13. ASPIRIN. [Concomitant]
     Active Substance: ASPIRIN
  14. SEROQUEL [Concomitant]
     Active Substance: QUETIAPINE FUMARATE
  15. IRON [Concomitant]
     Active Substance: IRON

REACTIONS (7)
  - Drooling [Unknown]
  - Pain [Not Recovered/Not Resolved]
  - Fatigue [Not Recovered/Not Resolved]
  - Nervousness [Unknown]
  - Back pain [Not Recovered/Not Resolved]
  - Kidney infection [Not Recovered/Not Resolved]
  - Blood urine present [Not Recovered/Not Resolved]

NARRATIVE: CASE EVENT DATE: 201706
